FAERS Safety Report 21917499 (Version 3)
Quarter: 2023Q2

REPORT INFORMATION
  Report Type: Other
  Country: DE (occurrence: DE)
  Receive Date: 20230126
  Receipt Date: 20230428
  Transmission Date: 20230722
  Serious: Yes (Hospitalization, Other)
  Sender: FDA-Public Use
  Company Number: DE-MACLEODS PHARMACEUTICALS US LTD-MAC2023039433

PATIENT

DRUGS (70)
  1. VALSARTAN [Suspect]
     Active Substance: VALSARTAN
     Indication: Hypertension
     Dosage: 160 MG
     Route: 065
     Dates: start: 20140602
  2. VALSARTAN [Suspect]
     Active Substance: VALSARTAN
     Dosage: UNK
     Route: 065
  3. VALSARTAN [Suspect]
     Active Substance: VALSARTAN
     Dosage: 160 MILLIGRAM, QD START DATE 2012
     Route: 065
  4. AMLODIPINE BESYLATE [Suspect]
     Active Substance: AMLODIPINE BESYLATE
     Indication: Product used for unknown indication
     Dosage: 10 MILLIGRAM
     Route: 065
  5. METOPROLOL [Suspect]
     Active Substance: METOPROLOL
     Indication: Product used for unknown indication
     Dosage: 47.5 MILLIGRAM (47.5 MG, (HALF TABLET) (DAILY EVENING))
     Route: 065
  6. METOPROLOL [Suspect]
     Active Substance: METOPROLOL
     Dosage: 47.5 MILLIGRAM, QD (DAILY MORNING)
     Route: 065
  7. VALSARTAN [Suspect]
     Active Substance: VALSARTAN
     Indication: Hypertension
     Dosage: 320 MILLIGRAM, QD (160 MG, BID (ONCE IN THE MORNING AT ABOUT 8 AM AND ONCE IN THE EVENING AT ABOUT 8
     Route: 065
  8. DICLOFENAC [Suspect]
     Active Substance: DICLOFENAC
     Indication: Product used for unknown indication
     Dosage: UNK
     Route: 065
  9. VALSARTAN [Suspect]
     Active Substance: VALSARTAN
     Indication: Hypertension
     Dosage: 160 MILLIGRAM (STOP DATE 2018)
     Route: 065
  10. ATORVASTATIN CALCIUM\EZETIMIBE [Suspect]
     Active Substance: ATORVASTATIN CALCIUM\EZETIMIBE
     Indication: Hyperlipidaemia
     Dosage: 1 DOSAGE FORM, QD (START DATE 2017, STOP DATE 2018)
     Route: 065
  11. ATORVASTATIN CALCIUM\EZETIMIBE [Suspect]
     Active Substance: ATORVASTATIN CALCIUM\EZETIMIBE
     Indication: Hypercholesterolaemia
  12. DICLOFENAC DIETHYLAMINE [Suspect]
     Active Substance: DICLOFENAC DIETHYLAMINE
     Indication: Oedema peripheral
     Dosage: 120 GRAM (START DATE 2018)
     Route: 065
  13. HYDROCHLOROTHIAZIDE\VALSARTAN [Concomitant]
     Active Substance: HYDROCHLOROTHIAZIDE\VALSARTAN
     Indication: Product used for unknown indication
     Dosage: UNK, QD (160 MG/12.5 MG, QD, DAILY AT MORNING)
     Route: 065
  14. CANDESARTAN [Concomitant]
     Active Substance: CANDESARTAN
     Indication: Hypertension
     Dosage: 32 MILLIGRAM, QD (ONCE IN THE MORNING (1-0-0)
     Route: 065
  15. CANDESARTAN [Concomitant]
     Active Substance: CANDESARTAN
     Dosage: 6 MILLIGRAM (START DATE 2018)
  16. Metoprolol succinat 1 A Pharma [Concomitant]
     Indication: Hypertension
     Dosage: UNK
     Route: 065
  17. Metoprolol succinat 1 A Pharma [Concomitant]
     Dosage: UNK (START DATE 2015), (INCREASED IN THE MORNING)
     Route: 065
  18. Metoprolol succinat 1 A Pharma [Concomitant]
     Dosage: UNK (START DATE  NOV 2015), (INCREASED IN THE MORNING)
     Route: 065
  19. PANTOPRAZOLE SODIUM [Concomitant]
     Active Substance: PANTOPRAZOLE SODIUM
     Indication: Product used for unknown indication
     Dosage: 20 MILLIGRAM
     Route: 065
  20. CANDESARTAN CILEXETIL\HYDROCHLOROTHIAZIDE [Concomitant]
     Active Substance: CANDESARTAN CILEXETIL\HYDROCHLOROTHIAZIDE
     Indication: Product used for unknown indication
     Dosage: 1 DOSAGE FORM, QD
     Route: 065
  21. AMLODIPINE BESYLATE [Concomitant]
     Active Substance: AMLODIPINE BESYLATE
     Indication: Product used for unknown indication
     Dosage: 5 MILLIGRAM (STOP DATE 2019)
     Route: 065
  22. TORSEMIDE [Concomitant]
     Active Substance: TORSEMIDE
     Indication: Product used for unknown indication
     Dosage: 5 MILLIGRAM, QD (5 MG DAILY MORNING)
     Route: 065
  23. INDAPAMIDE [Concomitant]
     Active Substance: INDAPAMIDE
     Indication: Product used for unknown indication
     Dosage: 1 DOSAGE FORM, QD (START DATE OCT 2019)
     Route: 065
  24. PROPRANOLOL HYDROCHLORIDE [Concomitant]
     Active Substance: PROPRANOLOL HYDROCHLORIDE
     Indication: Hypertension
     Dosage: UNK
     Route: 065
  25. PROPRANOLOL HYDROCHLORIDE [Concomitant]
     Active Substance: PROPRANOLOL HYDROCHLORIDE
     Dosage: UNK (START DATE NOV 2015)(INCREASED IN THE MORNING)
     Route: 065
  26. Amlodipin Hexal [Concomitant]
     Indication: Product used for unknown indication
     Dosage: 5 MILLIGRAM
  27. LERCANIDIPINE [Concomitant]
     Active Substance: LERCANIDIPINE
     Indication: Product used for unknown indication
     Dosage: 20 MILLIGRAM, QD (10 MG, BID (ONCE IN THE MORNING, ONCE IN THE EVENING (1-0-1)) (START DATE OCT 2019
     Route: 065
  28. LERCANIDIPINE [Concomitant]
     Active Substance: LERCANIDIPINE
     Dosage: 10 MILLIGRAM, QD (IN THE MORNING) (START DATE 2019)
     Route: 065
  29. LERCANIDIPINE [Concomitant]
     Active Substance: LERCANIDIPINE
     Dosage: 10 MILLIGRAM, QD (IN THE MORNING)
     Route: 065
  30. LERCANIDIPINE [Concomitant]
     Active Substance: LERCANIDIPINE
     Dosage: 40 MILLIGRAM, QD (IN THE MORNING)
     Route: 065
  31. LERCANIDIPINE [Concomitant]
     Active Substance: LERCANIDIPINE
     Dosage: 10 MILLIGRAM, QD
     Route: 065
  32. PANTOPRAZOLE [Concomitant]
     Active Substance: PANTOPRAZOLE
     Indication: Product used for unknown indication
     Dosage: 80 MILLIGRAM, QD 40 MG, BID (ONCE IN THE MORNING, ONCE IN THE EVENING (1-0-1)
     Route: 065
  33. PANTOPRAZOLE [Concomitant]
     Active Substance: PANTOPRAZOLE
     Dosage: 40 MILLIGRAM, QD ((ONCE IN THE MORNING (1-0-0))
     Route: 065
  34. PANTOPRAZOLE SODIUM [Concomitant]
     Active Substance: PANTOPRAZOLE SODIUM
     Indication: Product used for unknown indication
     Dosage: 20 MILLIGRAM, QD ((ONCE IN THE MORNING (1-0- 0)))
     Route: 065
  35. PANTOPRAZOLE SODIUM [Concomitant]
     Active Substance: PANTOPRAZOLE SODIUM
     Dosage: 20 MILLIGRAM,  QD ((ONCE IN THE EVENING))
     Route: 065
  36. CANDESARTAN CILEXETIL [Concomitant]
     Active Substance: CANDESARTAN CILEXETIL
     Indication: Hypertension
     Dosage: UNK (START DATE: 2018)
     Route: 065
  37. RAMIPRIL [Concomitant]
     Active Substance: RAMIPRIL
     Indication: Hypertension
     Dosage: UNK (START DATE 2018, STOP DATE 2018)
     Route: 065
  38. ATORVASTATIN [Concomitant]
     Active Substance: ATORVASTATIN
     Indication: Hypercholesterolaemia
     Dosage: 12 MILLIGRAM, QD ((ONCE DAILY IN THE EVENING (0-0-1))
     Route: 065
  39. ATORVASTATIN [Concomitant]
     Active Substance: ATORVASTATIN
     Dosage: 20 MILLIGRAM, QD (20 MG, QD (ONCE DAILY IN THE EVENING (0-0-1))
     Route: 065
  40. ATORVASTATIN CALCIUM [Concomitant]
     Active Substance: ATORVASTATIN CALCIUM
     Indication: Hypercholesterolaemia
     Dosage: 20 MILLIGRAM, QD (20 MG (DAILY MORNING)) START DATE: 2016
     Route: 065
  41. ATORVASTATIN CALCIUM [Concomitant]
     Active Substance: ATORVASTATIN CALCIUM
     Dosage: 40 MILLIGRAM (START DATE SEP 2020)
     Route: 065
  42. ATORVASTATIN CALCIUM [Concomitant]
     Active Substance: ATORVASTATIN CALCIUM
     Dosage: UNK (ONE IN THE EVENIN G (0-0-1)
     Route: 065
  43. BEZAFIBRATE 1A PHARMA GMBH [Concomitant]
     Indication: Product used for unknown indication
     Dosage: 400 MILLIGRAM, QD (START DATE 2018)
     Route: 065
  44. INDAPAMIDE [Concomitant]
     Active Substance: INDAPAMIDE
     Indication: Product used for unknown indication
     Dosage: 2.5 MILLIGRAM, QD (ONCE IN THE MORNING (1-0-0)
     Route: 065
  45. INDAPAMIDE [Concomitant]
     Active Substance: INDAPAMIDE
     Dosage: 1 DOSAGE FORM (START DATE: ON AN UNKNOWN DATE IN  OCT 2019), TABLET
     Route: 065
  46. METOPROLOL SUCCINATE [Concomitant]
     Active Substance: METOPROLOL SUCCINATE
     Indication: Product used for unknown indication
     Dosage: 47.5 MILLIGRAM, QD AT MORNING
     Route: 065
  47. METOPROLOL SUCCINATE [Concomitant]
     Active Substance: METOPROLOL SUCCINATE
     Dosage: 95 MILLIGRAM, QD (47.5 MG, QD (ONE IN THE MORNIN G AND A HALF IN THE EVENIN G (1-0- 1/2))
     Route: 065
  48. AMLODIPINE [Concomitant]
     Active Substance: AMLODIPINE BESYLATE
     Indication: Product used for unknown indication
     Dosage: 5 MILLIGRAM, QD (DAILY EVENING)
     Route: 065
  49. AMLODIPINE [Concomitant]
     Active Substance: AMLODIPINE BESYLATE
     Dosage: 5 MILLIGRAM, QD (DAILY MORNING)
     Route: 065
  50. CANDESARTAN ABZ [Concomitant]
     Indication: Product used for unknown indication
     Dosage: UNK UNK, QD (START DATE 2018) (ONCE IN THE MORNING)
     Route: 065
  51. VALIUM [Concomitant]
     Active Substance: DIAZEPAM
     Indication: Catheterisation cardiac
     Dosage: 2.5 MILLIGRAM
     Route: 042
  52. OXYGEN [Concomitant]
     Active Substance: OXYGEN
     Indication: Oesophagogastroduodenoscopy
     Dosage: UNK (2 LITER)
     Route: 065
     Dates: start: 20190821
  53. OXYGEN [Concomitant]
     Active Substance: OXYGEN
     Dosage: UNK (2 LITER)
     Route: 065
     Dates: start: 20190910
  54. OXYGEN [Concomitant]
     Active Substance: OXYGEN
     Dosage: UNK (2 LITER)
     Route: 065
     Dates: start: 20201013
  55. OXYGEN [Concomitant]
     Active Substance: OXYGEN
     Dosage: UNK (2 LITER)
     Route: 065
     Dates: start: 20190909
  56. OXYGEN [Concomitant]
     Active Substance: OXYGEN
     Dosage: UNK (2 LITER)
     Route: 065
     Dates: start: 20221209, end: 20221209
  57. OXYGEN [Concomitant]
     Active Substance: OXYGEN
     Dosage: UNK (2 LITER)
     Route: 065
     Dates: start: 20191204
  58. NITROGLYCERIN [Concomitant]
     Active Substance: NITROGLYCERIN
     Indication: Catheterisation cardiac
     Dosage: 0.2 MILLIGRAM INTRAARTERIAL
     Route: 065
  59. BUTYLSCOPOLAMINE BROMIDE [Concomitant]
     Active Substance: BUTYLSCOPOLAMINE BROMIDE
     Indication: Oesophagogastroduodenoscopy
     Dosage: 20 MILLIGRAM, QD
     Route: 065
     Dates: start: 20190909, end: 20190909
  60. HYDROCHLOROTHIAZIDE [Concomitant]
     Active Substance: HYDROCHLOROTHIAZIDE
     Indication: Product used for unknown indication
     Dosage: 12.5 MILLIGRAM, QD (ONCE IN THE MORNING (1-0-0)
     Route: 065
  61. CANDESARPLUS AL [Concomitant]
     Indication: Product used for unknown indication
     Dosage: 1 DOSAGE FORM, QD (ONE IN THE MORNING)
     Route: 065
  62. Unacid [Concomitant]
     Indication: Product used for unknown indication
     Dosage: 3 GRAM
     Route: 042
  63. IOMEPROL [Concomitant]
     Active Substance: IOMEPROL
     Indication: Catheterisation cardiac
     Dosage: 90 MILLILITER (INTRAARTERIAL)
     Route: 065
  64. HEPARIN [Concomitant]
     Active Substance: HEPARIN SODIUM
     Indication: Catheterisation cardiac
     Dosage: 5000 IU (5000.00 IU (5ML))
     Route: 042
  65. PROPOFOL [Concomitant]
     Active Substance: PROPOFOL
     Indication: Oesophagogastroduodenoscopy
     Dosage: 100 MILLIGRAM
     Route: 065
     Dates: start: 20190910, end: 20190910
  66. PROPOFOL [Concomitant]
     Active Substance: PROPOFOL
     Dosage: 70 MILLIGRAM
     Route: 042
     Dates: start: 20190821, end: 20190821
  67. PROPOFOL [Concomitant]
     Active Substance: PROPOFOL
     Dosage: UNK (150)
     Route: 042
     Dates: start: 20201013, end: 20201013
  68. PROPOFOL [Concomitant]
     Active Substance: PROPOFOL
     Dosage: 300 MILLIGRAM
     Route: 042
     Dates: start: 20190909, end: 20190909
  69. PROPOFOL [Concomitant]
     Active Substance: PROPOFOL
     Dosage: 300 MILLIGRAM
     Route: 042
     Dates: start: 20191204, end: 20191204
  70. PROPOFOL [Concomitant]
     Active Substance: PROPOFOL
     Dosage: 130 MILLIGRAM
     Route: 042
     Dates: start: 20190909, end: 20190909

REACTIONS (75)
  - Gastrointestinal stromal tumour [Recovering/Resolving]
  - Scar [Unknown]
  - Cough [Recovering/Resolving]
  - Arteriosclerosis coronary artery [Unknown]
  - Renal artery stenosis [Unknown]
  - Fungal oesophagitis [Unknown]
  - Diabetes mellitus [Unknown]
  - Hypertensive crisis [Unknown]
  - Ill-defined disorder [Unknown]
  - Tricuspid valve incompetence [Unknown]
  - Bradycardia [Unknown]
  - Snoring [Unknown]
  - Scoliosis [Unknown]
  - Trigger finger [Unknown]
  - Anxiety [Unknown]
  - Pyrexia [Recovering/Resolving]
  - Hiatus hernia [Unknown]
  - White blood cells urine positive [Unknown]
  - Dysphagia [Unknown]
  - Hyperlipidaemia [Not Recovered/Not Resolved]
  - Ligament rupture [Unknown]
  - Eczema [Unknown]
  - Limb discomfort [Unknown]
  - Obstructive sleep apnoea syndrome [Unknown]
  - Pain [Unknown]
  - Chest pain [Unknown]
  - Drug hypersensitivity [Unknown]
  - Wheezing [Unknown]
  - Pain in extremity [Unknown]
  - Oropharyngeal pain [Unknown]
  - Urine odour abnormal [Unknown]
  - Hypercholesterolaemia [Unknown]
  - Malaise [Unknown]
  - Abdominal distension [Unknown]
  - Torticollis [Unknown]
  - Back pain [Unknown]
  - Arteriosclerosis [Unknown]
  - Throat irritation [Unknown]
  - Urinary tract infection [Unknown]
  - Tenosynovitis [Unknown]
  - Epicondylitis [Unknown]
  - Haemorrhoids [Unknown]
  - Muscle spasticity [Unknown]
  - Pain in extremity [Unknown]
  - Hyperhomocysteinaemia [Unknown]
  - Oedema peripheral [Unknown]
  - Acne [Unknown]
  - Chest discomfort [Unknown]
  - Dyspepsia [Unknown]
  - Influenza [Recovered/Resolved]
  - Asthma [Unknown]
  - Insomnia [Unknown]
  - Cholelithiasis [Unknown]
  - Dysuria [Unknown]
  - Dyspnoea [Unknown]
  - Urinary incontinence [Unknown]
  - High density lipoprotein decreased [Unknown]
  - Nasopharyngitis [Recovering/Resolving]
  - Chronic gastritis [Unknown]
  - Stress [Unknown]
  - Gastrooesophageal reflux disease [Recovering/Resolving]
  - Paraesthesia [Unknown]
  - Diastolic dysfunction [Unknown]
  - Peripheral swelling [Unknown]
  - Rash [Unknown]
  - Arthralgia [Unknown]
  - Headache [Unknown]
  - Dizziness [Unknown]
  - Polyp [Unknown]
  - Cystitis [Unknown]
  - Nausea [Unknown]
  - Blood calcium decreased [Unknown]
  - Osteoarthritis [Unknown]
  - Spinal osteoarthritis [Unknown]
  - Supraventricular extrasystoles [Unknown]

NARRATIVE: CASE EVENT DATE: 20191001
